FAERS Safety Report 13806670 (Version 3)
Quarter: 2018Q1

REPORT INFORMATION
  Report Type: Report from Study
  Country: US (occurrence: US)
  Receive Date: 20170728
  Receipt Date: 20180125
  Transmission Date: 20180508
  Serious: No
  Sender: FDA-Public Use
  Company Number: US-AMGEN-USASL2017101316

PATIENT
  Age: 65 Year
  Sex: Female

DRUGS (4)
  1. REPATHA [Suspect]
     Active Substance: EVOLOCUMAB
     Indication: BLOOD CHOLESTEROL INCREASED
     Dosage: 140 MG, QMO
     Route: 065
  2. MAGNESIUM [Concomitant]
     Active Substance: MAGNESIUM
     Dosage: 400 MG, QD
     Dates: start: 201710
  3. REPATHA [Suspect]
     Active Substance: EVOLOCUMAB
     Indication: HYPERCHOLESTEROLAEMIA
     Dosage: 140 MG, Q2WK
     Route: 065
  4. REPATHA [Suspect]
     Active Substance: EVOLOCUMAB
     Dosage: 140 MG, Q4WK
     Route: 065
     Dates: start: 2017

REACTIONS (7)
  - Off label use [Unknown]
  - Insomnia [Unknown]
  - Low density lipoprotein decreased [Unknown]
  - Osteoarthritis [Unknown]
  - Secretion discharge [Unknown]
  - Musculoskeletal disorder [Unknown]
  - Vitamin D decreased [Unknown]

NARRATIVE: CASE EVENT DATE: 2017
